FAERS Safety Report 7764337-0 (Version None)
Quarter: 2011Q3

REPORT INFORMATION
  Report Type: 
  Country: None (occurrence: None)
  Receive Date: 20110921
  Receipt Date: 20110915
  Transmission Date: 20111222
  Serious: Yes (Hospitalization)
  Sender: FDA-Public Use
  Company Number: GB-BRISTOL-MYERS SQUIBB COMPANY-16065583

PATIENT
  Age: 70 Year
  Sex: Female

DRUGS (1)
  1. IPILIMUMAB [Suspect]
     Indication: MALIGNANT MELANOMA
     Dosage: Q21/7.2ND DOSE: 15AUG11.
     Route: 042
     Dates: start: 20110720

REACTIONS (4)
  - WEIGHT DECREASED [None]
  - FATIGUE [None]
  - ILEITIS [None]
  - ORAL CANDIDIASIS [None]
